FAERS Safety Report 5003884-1 (Version None)
Quarter: 2006Q2

REPORT INFORMATION
  Report Type: 
  Country: None (occurrence: None)
  Receive Date: 20060515
  Receipt Date: 20060502
  Transmission Date: 20061013
  Serious: Yes (Life-Threatening)
  Sender: FDA-Public Use
  Company Number: 2006MP000635

PATIENT
  Sex: Female

DRUGS (2)
  1. AGGRASTAT [Suspect]
     Dosage: IV
     Route: 042
     Dates: start: 20060101, end: 20060401
  2. HEPARIN [Concomitant]

REACTIONS (4)
  - GASTROINTESTINAL HAEMORRHAGE [None]
  - HAEMOLYTIC ANAEMIA [None]
  - INFUSION RELATED REACTION [None]
  - THROMBOCYTOPENIA [None]
